FAERS Safety Report 8169882-4 (Version None)
Quarter: 2012Q1

REPORT INFORMATION
  Report Type: 
  Country: None (occurrence: None)
  Receive Date: 20120228
  Receipt Date: 20111116
  Transmission Date: 20120608
  Serious: No
  Sender: FDA-Public Use
  Company Number: US-MYLANLABS-2011S1023911

PATIENT
  Age: 65 Year
  Sex: Female

DRUGS (1)
  1. VALACYCLOVIR HYDROCHLORIDE [Suspect]
     Indication: EYE INFECTION VIRAL
     Route: 048
     Dates: start: 20111110

REACTIONS (1)
  - VISION BLURRED [None]
